FAERS Safety Report 5173224-6 (Version None)
Quarter: 2006Q4

REPORT INFORMATION
  Report Type: 
  Country: None (occurrence: None)
  Receive Date: 20061214
  Receipt Date: 20061208
  Transmission Date: 20070319
  Serious: Yes (Other)
  Sender: FDA-Public Use
  Company Number: US-SOLVAY-00206004029

PATIENT
  Age: 19475 Day
  Sex: Male
  Weight: 86 kg

DRUGS (5)
  1. LOTREL [Concomitant]
     Indication: HYPERTENSION
     Dosage: DAILY DOSE: 1 DOSAGE FORM
     Route: 048
  2. ANDROGEL [Suspect]
     Indication: ILL-DEFINED DISORDER
     Dosage: DAILY DOSE: 10 GRAM(S)
     Route: 062
     Dates: start: 20050601, end: 20061208
  3. BENICAR [Concomitant]
     Indication: HYPERTENSION
     Dosage: DAILY DOSE: 1 DOSAGE FORM
     Route: 048
  4. ATENOLOL [Concomitant]
     Indication: HYPERTENSION
     Dosage: DAILY DOSE: 25 MILLIGRAM(S)
     Route: 048
  5. ZETIA [Concomitant]
     Indication: HYPERCHOLESTEROLAEMIA
     Dosage: DAILY DOSE:  UNKNOWN
     Route: 048
     Dates: end: 20061208

REACTIONS (2)
  - BLOOD TESTOSTERONE INCREASED [None]
  - RASH [None]
